FAERS Safety Report 20519103 (Version 5)
Quarter: 2022Q4

REPORT INFORMATION
  Report Type: Report from Study
  Country: KR (occurrence: KR)
  Receive Date: 20220225
  Receipt Date: 20221026
  Transmission Date: 20230112
  Serious: Yes (Death, Hospitalization, Other)
  Sender: FDA-Public Use
  Company Number: KR-002147023-NVSC2022KR036304

PATIENT

DRUGS (36)
  1. RUXOLITINIB [Suspect]
     Active Substance: RUXOLITINIB
     Indication: Myelofibrosis
     Dosage: 10 MG, BID
     Route: 048
     Dates: start: 20210820
  2. BERAPROST [Concomitant]
     Active Substance: BERAPROST
     Indication: Prophylaxis
     Dosage: 40 MG, QD (40MG/DAY)
     Route: 048
     Dates: start: 20210806, end: 20210901
  3. CNU [Concomitant]
     Indication: Prophylaxis
     Dosage: 250 MG, QD (250MG/DAY)
     Route: 048
     Dates: start: 20210805, end: 20210901
  4. FLUCOZOLE [Concomitant]
     Indication: Prophylaxis
     Dosage: 50 MG, QD (50MG/DAY)
     Route: 048
     Dates: start: 20210810, end: 20210909
  5. FOLIC ACID [Concomitant]
     Active Substance: FOLIC ACID
     Indication: Prophylaxis
     Dosage: 1 MG, QD (1MG/DAY)
     Route: 048
     Dates: start: 20210805, end: 20210901
  6. KANARB [Concomitant]
     Indication: Prophylaxis
     Dosage: 60 MG, QD (60MG/DAY)
     Route: 048
     Dates: start: 20210818, end: 20210902
  7. LIVALO [Concomitant]
     Active Substance: PITAVASTATIN CALCIUM
     Indication: Prophylaxis
     Dosage: 2 MG, QD (2MG/DAY)
     Route: 048
     Dates: start: 20210805, end: 20210901
  8. MACPERAN [METOCLOPRAMIDE HYDROCHLORIDE] [Concomitant]
     Indication: Prophylaxis
     Dosage: 5 MG, QD (5MG/DAY)
     Route: 048
     Dates: start: 20210807, end: 20210904
  9. MEGACE F [Concomitant]
     Indication: Prophylaxis
     Dosage: 625 MG, QD (625MG/DAY)
     Route: 048
     Dates: start: 20210817, end: 20210914
  10. NORZYME [Concomitant]
     Indication: Prophylaxis
     Dosage: 457.7 MG, QD (457.7MG/DAY ( ENTERIC COATED MICROTABLET))
     Route: 048
     Dates: start: 20210805, end: 20210901
  11. POLYBUTIN [TRIMEBUTINE MALEATE] [Concomitant]
     Indication: Prophylaxis
     Dosage: 100 MG, QD (100MG/DAY)
     Route: 048
     Dates: start: 20210805, end: 20210901
  12. RABED [Concomitant]
     Indication: Prophylaxis
     Dosage: 10 MG, QD (10MG/DAY)
     Route: 048
     Dates: start: 20210803, end: 20210909
  13. RAMSET [Concomitant]
     Indication: Prophylaxis
     Dosage: 0.1 MG, QD (0.1MG/DAY (OD))
     Route: 048
     Dates: start: 20210819, end: 20210902
  14. SULFAMETHOXAZOLE\TRIMETHOPRIM [Concomitant]
     Active Substance: SULFAMETHOXAZOLE\TRIMETHOPRIM
     Indication: Prophylaxis
     Dosage: UNK, QD (80/400MG/DAY)
     Route: 048
     Dates: start: 20210810, end: 20210909
  15. PREDNISOLONE [Concomitant]
     Active Substance: PREDNISOLONE
     Indication: Prophylaxis
     Dosage: 7.5MG/DAY
     Route: 048
     Dates: start: 20210818, end: 20211004
  16. SYNTHROID [Concomitant]
     Active Substance: LEVOTHYROXINE SODIUM
     Indication: Prophylaxis
     Dosage: 0.1 MG, QD (0.1MG/DAY)
     Route: 048
     Dates: start: 20210818, end: 20210902
  17. TAMSULO [Concomitant]
     Indication: Prophylaxis
     Dosage: 0.2 MG, QD (0.2MG/DAY (STRENGTH: 0.2MG/C(KOLON))
     Route: 048
     Dates: start: 20210805, end: 20210901
  18. TYLENOL 8HR [Concomitant]
     Active Substance: ACETAMINOPHEN
     Indication: Prophylaxis
     Dosage: 650 MG, QD (650MG/DAY)
     Route: 048
     Dates: start: 20210803, end: 20211004
  19. ULTRACET [Concomitant]
     Active Substance: ACETAMINOPHEN\TRAMADOL HYDROCHLORIDE
     Indication: Prophylaxis
     Dosage: UNK UNK, QD (650/75MG/DAY (ER))
     Route: 048
     Dates: start: 20210804, end: 20210830
  20. VASTINAN MR [Concomitant]
     Indication: Prophylaxis
     Dosage: 35 MG, QD (35MG/DAY (VASTINAN MR/T))
     Route: 048
     Dates: start: 20210818, end: 20210902
  21. LENOGRASTIM [Concomitant]
     Active Substance: LENOGRASTIM
     Indication: Prophylaxis
     Dosage: 250 UG, QD
     Route: 058
     Dates: start: 20210820, end: 20210824
  22. MAXIPIME [Concomitant]
     Active Substance: CEFEPIME HYDROCHLORIDE
     Indication: Prophylaxis
     Dosage: 4 G, QD
     Route: 042
     Dates: start: 20210820, end: 20210826
  23. MAXIPIME [Concomitant]
     Active Substance: CEFEPIME HYDROCHLORIDE
     Indication: Myelofibrosis
  24. TRAMADOL HYDROCHLORIDE [Concomitant]
     Active Substance: TRAMADOL HYDROCHLORIDE
     Indication: Myelofibrosis
     Dosage: 100 MG, QD
     Route: 042
     Dates: start: 20210820, end: 20210902
  25. TRAMADOL HYDROCHLORIDE [Concomitant]
     Active Substance: TRAMADOL HYDROCHLORIDE
     Dosage: 50 MG, QD
     Route: 065
     Dates: start: 20211123
  26. PROPACETAMOL HYDROCHLORIDE [Concomitant]
     Active Substance: PROPACETAMOL HYDROCHLORIDE
     Indication: Myelofibrosis
     Dosage: 1 G, QD
     Route: 042
     Dates: start: 20210820, end: 20210902
  27. ASPIRIN [Concomitant]
     Active Substance: ASPIRIN
     Indication: Prophylaxis
     Dosage: 100 MG, QD
     Route: 048
     Dates: start: 20210821, end: 20211204
  28. ASPIRIN [Concomitant]
     Active Substance: ASPIRIN
     Indication: Myelofibrosis
  29. KASUWELL [Concomitant]
     Indication: Prophylaxis
     Dosage: 5 G, QD
     Route: 048
     Dates: start: 20210826
  30. LECTACIN [Concomitant]
     Indication: Prophylaxis
     Dosage: 750 MG, QD
     Route: 048
     Dates: start: 20210827, end: 20210904
  31. LECTACIN [Concomitant]
     Indication: Myelofibrosis
     Dosage: 500 MG, QD
     Route: 048
     Dates: start: 20211123, end: 20211208
  32. TACOPEN [Concomitant]
     Indication: Myelofibrosis
     Dosage: 6 DOSAGE FORM, QD
     Route: 048
     Dates: start: 20210830, end: 20210831
  33. TACOPEN [Concomitant]
     Indication: Prophylaxis
     Dosage: 3 DOSAGE FORM, QD
     Route: 048
     Dates: start: 20211028
  34. ZOLPIDEM TARTRATE [Concomitant]
     Active Substance: ZOLPIDEM TARTRATE
     Indication: Myelofibrosis
     Dosage: 6.25 MG, QD
     Route: 048
     Dates: start: 20210923, end: 20211210
  35. ZOLPIDEM TARTRATE [Concomitant]
     Active Substance: ZOLPIDEM TARTRATE
     Indication: Prophylaxis
  36. NICARDIPINE HYDROCHLORIDE [Concomitant]
     Active Substance: NICARDIPINE HYDROCHLORIDE
     Indication: Prophylaxis
     Dosage: 2 MG, QD
     Route: 042
     Dates: start: 20211123, end: 20211204

REACTIONS (13)
  - Anaemia [Not Recovered/Not Resolved]
  - Decreased appetite [Recovered/Resolved]
  - C-reactive protein increased [Unknown]
  - Colitis [Fatal]
  - Sepsis [Fatal]
  - Constipation [Recovered/Resolved]
  - Somnolence [Recovered/Resolved]
  - Insomnia [Recovered/Resolved]
  - Peripheral swelling [Recovered/Resolved]
  - Pain in extremity [Recovered/Resolved]
  - Neutropenia [Not Recovered/Not Resolved]
  - Depressed level of consciousness [Fatal]
  - White blood cell count decreased [Unknown]

NARRATIVE: CASE EVENT DATE: 20210906
